FAERS Safety Report 6243177-8 (Version None)
Quarter: 2009Q2

REPORT INFORMATION
  Report Type: 
  Country: None (occurrence: None)
  Receive Date: 20090624
  Receipt Date: 20090401
  Transmission Date: 20091009
  Serious: Yes (Life-Threatening, Hospitalization)
  Sender: FDA-Public Use
  Company Number: TR-ELI_LILLY_AND_COMPANY-TR200906002592

PATIENT
  Age: 62 Year
  Sex: Female

DRUGS (6)
  1. HUMULIN N [Suspect]
     Indication: DIABETES MELLITUS
     Dosage: 18 U, EACH MORNING
     Route: 058
     Dates: start: 20080225
  2. HUMULIN N [Suspect]
     Dosage: 14 U, EACH EVENING
     Route: 058
     Dates: start: 20080225
  3. TALCID [Concomitant]
     Indication: ABDOMINAL PAIN UPPER
     Dosage: UNK, EACH EVENING
     Route: 065
  4. DELIX [Concomitant]
     Indication: HYPERTENSION
     Dosage: UNK, EACH EVENING
     Route: 065
  5. DELIX [Concomitant]
     Dosage: UNK, EACH MORNING
     Route: 065
  6. ATARAX [Concomitant]
     Indication: SINUSITIS
     Dosage: UNK, 3/D
     Route: 065

REACTIONS (3)
  - BLOOD GLUCOSE INCREASED [None]
  - CONTUSION [None]
  - DIABETIC COMA [None]
